FAERS Safety Report 14545629 (Version 2)
Quarter: 2018Q1

REPORT INFORMATION
  Report Type: Spontaneous
  Country: US (occurrence: US)
  Receive Date: 20180218
  Receipt Date: 20180223
  Transmission Date: 20180509
  Serious: No
  Sender: FDA-Public Use
  Company Number: US-BAXTER-2018BAX005468

PATIENT
  Age: 73 Year
  Sex: Male

DRUGS (1)
  1. DIANEAL LOW CALCIUM PERITONEAL DIALYSIS SOLUTION WITH DEXTROSE [Suspect]
     Active Substance: CALCIUM CHLORIDE\DEXTROSE\MAGNESIUM CHLORIDE\SODIUM CHLORIDE\SODIUM LACTATE
     Indication: PERITONEAL DIALYSIS
     Route: 033
     Dates: start: 20180116, end: 20180116

REACTIONS (4)
  - General physical health deterioration [Unknown]
  - Blood glucose increased [Recovered/Resolved]
  - Blood glucose abnormal [Recovered/Resolved]
  - Abnormal behaviour [Unknown]

NARRATIVE: CASE EVENT DATE: 20180116
